FAERS Safety Report 8078004-X (Version None)
Quarter: 2012Q1

REPORT INFORMATION
  Report Type: 
  Country: None (occurrence: None)
  Receive Date: 20120127
  Receipt Date: 20110223
  Transmission Date: 20120608
  Serious: No
  Sender: FDA-Public Use
  Company Number: US-ABBOTT-11P-163-0695769-00

PATIENT
  Sex: Female

DRUGS (3)
  1. HUMIRA [Suspect]
     Indication: CROHN'S DISEASE
     Route: 058
     Dates: end: 20101101
  2. HUMIRA [Suspect]
     Route: 058
  3. CELEXA [Concomitant]
     Indication: DEPRESSION

REACTIONS (10)
  - CAESAREAN SECTION [None]
  - HAIR DISORDER [None]
  - FREQUENT BOWEL MOVEMENTS [None]
  - FATIGUE [None]
  - MALAISE [None]
  - SWEAT GLAND INFECTION [None]
  - GESTATIONAL DIABETES [None]
  - VULVAL DISORDER [None]
  - FISTULA [None]
  - INJECTION SITE PAIN [None]
